FAERS Safety Report 11803381 (Version 15)
Quarter: 2018Q4

REPORT INFORMATION
  Report Type: Spontaneous
  Country: US (occurrence: US)
  Receive Date: 20151204
  Receipt Date: 20181101
  Transmission Date: 20190204
  Serious: Yes (Hospitalization, Other)
  Sender: FDA-Public Use
  Company Number: US-AMGEN-USASP2015126984

PATIENT
  Age: 70 Year
  Sex: Female
  Weight: 49.84 kg

DRUGS (23)
  1. PREDNISONE. [Concomitant]
     Active Substance: PREDNISONE
     Indication: PAIN
     Dosage: 10 MG, AS NECESSARY
     Dates: start: 201710
  2. DILANTIN [Concomitant]
     Active Substance: PHENYTOIN
     Dosage: UNK
  3. ACTEMRA [Concomitant]
     Active Substance: TOCILIZUMAB
     Dosage: UNK
  4. DEPAKOTE [Concomitant]
     Active Substance: DIVALPROEX SODIUM
     Dosage: UNK
  5. KETEK [Concomitant]
     Active Substance: TELITHROMYCIN
     Dosage: UNK
  6. ENBREL [Suspect]
     Active Substance: ETANERCEPT
     Dosage: UNK UNK, QWK
     Route: 065
  7. XELJANZ [Suspect]
     Active Substance: TOFACITINIB CITRATE
     Indication: RHEUMATOID ARTHRITIS
     Dosage: 5 MG, BID
     Route: 048
     Dates: start: 2014
  8. METHOTREXATE SODIUM. [Suspect]
     Active Substance: METHOTREXATE SODIUM
     Indication: PRODUCT USED FOR UNKNOWN INDICATION
     Dosage: UNK
     Route: 065
  9. CLINDAMYCIN. [Concomitant]
     Active Substance: CLINDAMYCIN
     Dosage: 75 MG, UNK
  10. TEGRETOL [Concomitant]
     Active Substance: CARBAMAZEPINE
     Dosage: UNK
  11. HUMIRA [Concomitant]
     Active Substance: ADALIMUMAB
     Dosage: UNK
  12. HYDROCODONE [Concomitant]
     Active Substance: HYDROCODONE
     Indication: PAIN
     Dosage: UNK
  13. ENBREL [Suspect]
     Active Substance: ETANERCEPT
     Indication: JUVENILE IDIOPATHIC ARTHRITIS
     Dosage: UNK, QMO
     Route: 065
     Dates: start: 2012
  14. CITRIC ACID [Suspect]
     Active Substance: CITRIC ACID MONOHYDRATE
     Indication: PRODUCT USED FOR UNKNOWN INDICATION
     Dosage: UNK
     Route: 065
  15. REMICADE [Concomitant]
     Active Substance: INFLIXIMAB
     Dosage: UNK
  16. SULFA [Concomitant]
     Active Substance: UNSPECIFIED INGREDIENT
     Dosage: UNK
  17. ERYTHROMYCIN. [Concomitant]
     Active Substance: ERYTHROMYCIN
     Dosage: UNK
  18. ENBREL [Suspect]
     Active Substance: ETANERCEPT
     Indication: RHEUMATOID ARTHRITIS
     Dosage: UNK UNK, QMO
     Route: 065
     Dates: start: 2014
  19. MINOCYCLINE [Concomitant]
     Active Substance: MINOCYCLINE\MINOCYCLINE HYDROCHLORIDE
     Dosage: 100 MG, UNK
  20. KETOLIDE [Concomitant]
     Active Substance: KETAMINE HYDROCHLORIDE
     Dosage: UNK
  21. PREDNISONE. [Concomitant]
     Active Substance: PREDNISONE
     Dosage: 5 MG, UNK
  22. NEURONTIN [Concomitant]
     Active Substance: GABAPENTIN
     Dosage: 100 MG, UNK
  23. AZITHROMYCINE [Concomitant]
     Active Substance: AZITHROMYCIN
     Dosage: 250 MG, UNK

REACTIONS (22)
  - Loss of consciousness [Unknown]
  - Drug hypersensitivity [Unknown]
  - Blood cholesterol increased [Unknown]
  - Pain [Recovered/Resolved]
  - Cough [Unknown]
  - Adverse reaction [Unknown]
  - Malaise [Unknown]
  - Sinonasal obstruction [Unknown]
  - Spinal pain [Unknown]
  - Dyspnoea [Unknown]
  - Lung disorder [Unknown]
  - Off label use [Unknown]
  - Unevaluable event [Unknown]
  - Feeling abnormal [Unknown]
  - Pharyngeal disorder [Unknown]
  - Insomnia [Not Recovered/Not Resolved]
  - Gait inability [Not Recovered/Not Resolved]
  - Diarrhoea [Unknown]
  - Rheumatoid arthritis [Unknown]
  - Drug effect decreased [Unknown]
  - Oropharyngeal pain [Unknown]
  - Oropharyngeal discolouration [Unknown]

NARRATIVE: CASE EVENT DATE: 201612
